FAERS Safety Report 15594445 (Version 2)
Quarter: 2018Q4

REPORT INFORMATION
  Report Type: Report from Study
  Country: US (occurrence: US)
  Receive Date: 20181106
  Receipt Date: 20181210
  Transmission Date: 20190205
  Serious: Yes (Hospitalization)
  Sender: FDA-Public Use
  Company Number: US-ACTELION-A-US2018-170370

PATIENT
  Age: 61 Year
  Sex: Female

DRUGS (2)
  1. VELETRI [Suspect]
     Active Substance: EPOPROSTENOL
     Indication: PULMONARY ARTERIAL HYPERTENSION
     Dosage: 18 NG/KG, PER MIN
     Route: 042
     Dates: start: 20150627
  2. VELETRI [Suspect]
     Active Substance: EPOPROSTENOL
     Dosage: 37 NG/KG, PER MIN
     Route: 042
     Dates: start: 20181123

REACTIONS (11)
  - Condition aggravated [Unknown]
  - Ear disorder [Unknown]
  - Abdominal pain upper [Unknown]
  - Syncope [Unknown]
  - Headache [Unknown]
  - Pain in jaw [Unknown]
  - Pulmonary arterial hypertension [Unknown]
  - Disease complication [Unknown]
  - Dyspnoea [Unknown]
  - Influenza [Unknown]
  - Diarrhoea [Unknown]

NARRATIVE: CASE EVENT DATE: 20180313
